FAERS Safety Report 9937899 (Version 2)
Quarter: 2014Q1

REPORT INFORMATION
  Report Type: Report from Study
  Country: US (occurrence: US)
  Receive Date: 20140303
  Receipt Date: 20140304
  Transmission Date: 20141002
  Serious: Yes (Other)
  Sender: FDA-Public Use
  Company Number: US-ROCHE-1356846

PATIENT
  Sex: Female

DRUGS (4)
  1. XOLAIR [Suspect]
     Indication: ASTHMA
     Route: 058
  2. XOLAIR [Suspect]
     Indication: ANAPHYLACTIC REACTION
  3. PREDNISONE [Concomitant]
  4. EPIPEN [Concomitant]

REACTIONS (1)
  - Anaphylactic shock [Unknown]
